FAERS Safety Report 20113016 (Version 1)
Quarter: 2021Q4

REPORT INFORMATION
  Report Type: Spontaneous
  Country: US (occurrence: US)
  Receive Date: 20211125
  Receipt Date: 20211125
  Transmission Date: 20220303
  Serious: No
  Sender: FDA-Public Use
  Company Number: US-BoehringerIngelheim-2021-BI-140074

PATIENT
  Sex: Female

DRUGS (1)
  1. SPIRIVA RESPIMAT [Suspect]
     Active Substance: TIOTROPIUM BROMIDE
     Indication: Chronic obstructive pulmonary disease
     Dosage: DOSAGE FORM: INHALATION SPRAY
     Route: 055
     Dates: start: 2018

REACTIONS (3)
  - Dyspnoea [Unknown]
  - Cataract [Unknown]
  - Underdose [Unknown]
